FAERS Safety Report 9842722 (Version 1)
Quarter: 2014Q1

REPORT INFORMATION
  Report Type: Spontaneous
  Country: US (occurrence: US)
  Receive Date: 20140124
  Receipt Date: 20140124
  Transmission Date: 20141002
  Serious: No
  Sender: FDA-Public Use
  Company Number: US-EISAI INC-AP356-00396-SPO-US

PATIENT
  Age: 52 Year
  Sex: Female

DRUGS (17)
  1. BELVIQ (LORCASERIN HYDROCHLORIDE) [Suspect]
     Indication: WEIGHT DECREASED
     Route: 048
     Dates: start: 20140105, end: 20140111
  2. BELVIQ (LORCASERIN HYDROCHLORIDE) [Suspect]
     Route: 048
     Dates: start: 20140112
  3. TAMOXIFEN [Concomitant]
     Indication: BREAST CANCER
     Route: 048
  4. QUNOL [Concomitant]
     Indication: PRODUCT USED FOR UNKNOWN INDICATION
     Route: 048
  5. MAGNESIUM OXIDE [Concomitant]
     Indication: PRODUCT USED FOR UNKNOWN INDICATION
     Route: 048
  6. CENTRUM MULTIVITAMIN [Concomitant]
     Indication: PRODUCT USED FOR UNKNOWN INDICATION
     Route: 048
  7. BABY ASPIRIN [Concomitant]
     Indication: ANTICOAGULANT THERAPY
     Route: 048
  8. FISH OIL [Concomitant]
     Indication: PRODUCT USED FOR UNKNOWN INDICATION
     Dosage: 2 CAPSULES/DAY
     Route: 048
  9. LORATADINE [Concomitant]
     Indication: PRODUCT USED FOR UNKNOWN INDICATION
     Route: 048
  10. ALTACE [Concomitant]
     Indication: PRODUCT USED FOR UNKNOWN INDICATION
     Route: 048
  11. INVOKANA [Concomitant]
     Indication: TYPE 2 DIABETES MELLITUS
     Route: 048
  12. AMILORIDE [Concomitant]
     Indication: PRODUCT USED FOR UNKNOWN INDICATION
     Route: 048
  13. AMLODIPINE [Concomitant]
     Indication: PRODUCT USED FOR UNKNOWN INDICATION
     Route: 048
  14. METFORMIN [Concomitant]
     Indication: TYPE 2 DIABETES MELLITUS
     Route: 048
  15. ACTOSE [Concomitant]
     Indication: PRODUCT USED FOR UNKNOWN INDICATION
     Route: 048
  16. SIMCOR [Concomitant]
     Indication: BLOOD CHOLESTEROL INCREASED
     Dosage: 1000/40 MG
     Route: 048
  17. VICTOZA [Concomitant]
     Indication: TYPE 2 DIABETES MELLITUS
     Route: 058

REACTIONS (1)
  - Depressed mood [Recovered/Resolved]
